FAERS Safety Report 15319817 (Version 2)
Quarter: 2018Q4

REPORT INFORMATION
  Report Type: Report from Study
  Country: None (occurrence: US)
  Receive Date: 20180827
  Receipt Date: 20181101
  Transmission Date: 20190204
  Serious: Yes (Other)
  Sender: FDA-Public Use
  Company Number: US-ABBVIE-18K-163-2463504-00

PATIENT
  Age: 45 Year
  Sex: Female

DRUGS (4)
  1. BUMETANIDE. [Concomitant]
     Active Substance: BUMETANIDE
     Indication: FLUID RETENTION
  2. KLOR-CON [Concomitant]
     Active Substance: POTASSIUM CHLORIDE
     Indication: SUPPLEMENTATION THERAPY
  3. HUMIRA [Suspect]
     Active Substance: ADALIMUMAB
     Indication: HIDRADENITIS
     Route: 058
     Dates: start: 20171017
  4. DOXYCYCLINE. [Concomitant]
     Active Substance: DOXYCYCLINE
     Indication: HIDRADENITIS

REACTIONS (7)
  - Injection site pain [Recovered/Resolved with Sequelae]
  - Procedural pain [Recovering/Resolving]
  - Injection site bruising [Recovered/Resolved with Sequelae]
  - Trigger finger [Recovered/Resolved]
  - Vitamin D decreased [Not Recovered/Not Resolved]
  - Grip strength decreased [Recovering/Resolving]
  - Incision site hyperaesthesia [Recovering/Resolving]

NARRATIVE: CASE EVENT DATE: 201712
